FAERS Safety Report 8806097 (Version 7)
Quarter: 2013Q2

REPORT INFORMATION
  Report Type: Spontaneous
  Country: US (occurrence: US)
  Receive Date: 20120925
  Receipt Date: 20130419
  Transmission Date: 20140414
  Serious: Yes (Other)
  Sender: FDA-Public Use
  Company Number: US-009507513-1209USA008207

PATIENT
  Age: 55 Year
  Sex: Female

DRUGS (7)
  1. PEGINTRON [Suspect]
     Indication: HEPATITIS C
     Dosage: UNK
     Dates: start: 20100101, end: 20100201
  2. PEGINTRON [Suspect]
     Dosage: UNK
     Dates: start: 20120916
  3. RIBAVIRIN [Suspect]
     Indication: HEPATITIS C
     Dosage: UNK
     Route: 048
     Dates: start: 20100101, end: 20100201
  4. RIBAVIRIN [Suspect]
     Dosage: UNK
     Route: 048
     Dates: start: 20120916
  5. VICTRELIS [Suspect]
     Indication: HEPATITIS C
     Dosage: UNK
     Route: 048
     Dates: start: 20121102
  6. VICTRELIS [Suspect]
     Dosage: UNK
  7. VICTRELIS [Suspect]
     Dosage: UNK

REACTIONS (59)
  - Crying [Unknown]
  - Homicidal ideation [Unknown]
  - Suicidal ideation [Unknown]
  - Sciatica [Unknown]
  - Sciatica [Unknown]
  - Hypothyroidism [Unknown]
  - Influenza like illness [Unknown]
  - Arthralgia [Unknown]
  - Chills [Unknown]
  - Nocturia [Unknown]
  - Dry mouth [Unknown]
  - Feeling abnormal [Unknown]
  - Dizziness [Unknown]
  - Lacrimation decreased [Unknown]
  - Vomiting [Unknown]
  - Constipation [Unknown]
  - Chromaturia [Unknown]
  - Pain [Unknown]
  - Back pain [Unknown]
  - Diarrhoea [Unknown]
  - Abdominal pain lower [Recovered/Resolved]
  - Headache [Unknown]
  - Dry skin [Unknown]
  - Fatigue [Unknown]
  - Red blood cell count decreased [Unknown]
  - Musculoskeletal discomfort [Unknown]
  - Dyspnoea [Unknown]
  - Rhinorrhoea [Unknown]
  - Nausea [Unknown]
  - Asthenia [Unknown]
  - Oropharyngeal pain [Unknown]
  - Nasal congestion [Unknown]
  - Alopecia [Unknown]
  - Irritability [Unknown]
  - Feeling abnormal [Unknown]
  - Vomiting [Unknown]
  - Pain [Unknown]
  - Increased upper airway secretion [Unknown]
  - Fatigue [Unknown]
  - Influenza like illness [Unknown]
  - Headache [Unknown]
  - Influenza like illness [Not Recovered/Not Resolved]
  - Serum ferritin increased [Unknown]
  - Renal disorder [Unknown]
  - Blister [Unknown]
  - Mouth ulceration [Unknown]
  - Decreased appetite [Unknown]
  - Weight decreased [Unknown]
  - Alopecia [Unknown]
  - Confusional state [Unknown]
  - Nightmare [Unknown]
  - Abnormal dreams [Unknown]
  - Diarrhoea [Unknown]
  - Malaise [Unknown]
  - Tremor [Unknown]
  - Back pain [Unknown]
  - Anaemia [Unknown]
  - Anaemia [Recovering/Resolving]
  - Haemoglobin decreased [Recovering/Resolving]
